FAERS Safety Report 4676986-7 (Version None)
Quarter: 2005Q2

REPORT INFORMATION
  Report Type: 
  Country: None (occurrence: None)
  Receive Date: 20050526
  Receipt Date: 20050513
  Transmission Date: 20051028
  Serious: Yes (Hospitalization)
  Sender: FDA-Public Use
  Company Number: 2005074668

PATIENT
  Age: 61 Year
  Sex: Male

DRUGS (7)
  1. DOXORUBICIN HYDROCHLORIDE [Suspect]
     Indication: ILL-DEFINED DISORDER
     Dosage: INTRAVENOUS
     Route: 042
     Dates: start: 20041123, end: 20041203
  2. ETOPOSIDE [Suspect]
     Indication: ILL-DEFINED DISORDER
     Dosage: INTRAVENOUS
     Route: 042
     Dates: start: 20041123, end: 20041203
  3. CYCLOPHOSPHAMIDE [Suspect]
     Indication: ILL-DEFINED DISORDER
     Dosage: INTRAVENOUS
     Route: 042
     Dates: start: 20041123, end: 20041203
  4. CYTARABINE [Suspect]
     Indication: ILL-DEFINED DISORDER
     Dosage: INTRAVENOUS
     Route: 042
     Dates: start: 20041123, end: 20041203
  5. PYOSTACINE (PRISTINAMYCIN) [Suspect]
     Indication: SKIN INFECTION
     Dosage: ORAL
     Route: 048
     Dates: start: 20041123
  6. ALLOPURINOL [Suspect]
     Indication: TUMOUR LYSIS SYNDROME
     Dosage: ORAL
     Route: 048
     Dates: start: 20041123
  7. HYZAAR [Concomitant]

REACTIONS (4)
  - CARDIAC FAILURE [None]
  - DERMATITIS EXFOLIATIVE [None]
  - ERYTHEMA [None]
  - FEBRILE BONE MARROW APLASIA [None]
